FAERS Safety Report 4754924-6 (Version None)
Quarter: 2005Q3

REPORT INFORMATION
  Report Type: 
  Country: None (occurrence: None)
  Receive Date: 20050829
  Receipt Date: 20050817
  Transmission Date: 20060218
  Serious: Yes (Other)
  Sender: FDA-Public Use
  Company Number: US-ROCHE-414806

PATIENT
  Age: 53 Year
  Sex: Male

DRUGS (1)
  1. INTERFERON ALFA [Suspect]
     Route: 065
     Dates: start: 19980315, end: 19980915

REACTIONS (4)
  - ANAEMIA [None]
  - FATIGUE [None]
  - SQUAMOUS CELL CARCINOMA [None]
  - THERAPY NON-RESPONDER [None]
